FAERS Safety Report 5204411-6 (Version None)
Quarter: 2007Q1

REPORT INFORMATION
  Report Type: 
  Country: None (occurrence: None)
  Receive Date: 20070110
  Receipt Date: 20060317
  Transmission Date: 20070707
  Serious: No
  Sender: FDA-Public Use
  Company Number: US-BRISTOL-MYERS SQUIBB COMPANY-13319678

PATIENT
  Age: 49 Year
  Sex: Female

DRUGS (8)
  1. ABILIFY [Suspect]
     Indication: SCHIZOPHRENIA
  2. NORVASC [Concomitant]
  3. ATIVAN [Concomitant]
  4. ARTANE [Concomitant]
  5. NAVANE [Concomitant]
  6. PROTONIX [Concomitant]
  7. ZOLOFT [Concomitant]
  8. PREDNISONE TAB [Concomitant]

REACTIONS (1)
  - RASH PAPULAR [None]
